FAERS Safety Report 25320335 (Version 1)
Quarter: 2025Q2

REPORT INFORMATION
  Report Type: Spontaneous
  Country: US (occurrence: None)
  Receive Date: 20250515
  Receipt Date: 20250515
  Transmission Date: 20250717
  Serious: No
  Sender: INCYTE
  Company Number: US-002147023-NVSC2023US093311

PATIENT
  Age: 57 Year

DRUGS (7)
  1. OPZELURA [Suspect]
     Active Substance: RUXOLITINIB PHOSPHATE
     Indication: Granuloma annulare
     Dosage: 2 PERCENT, BID (FOR 6 WEEKS)
  2. TRIAMCINOLONE [Concomitant]
     Active Substance: TRIAMCINOLONE
     Indication: Granuloma annulare
  3. CLOBETASOL [Concomitant]
     Active Substance: CLOBETASOL
     Indication: Granuloma annulare
     Dosage: 0.05 PERCENT, BID (5 TIMES WEEKLY)
  4. MINOCYCLINE [Concomitant]
     Active Substance: MINOCYCLINE HYDROCHLORIDE
     Indication: Granuloma annulare
     Dosage: 100 MILLIGRAM, MONTHLY (SINGLE ORAL DOSE ONCE A MONTH FOR 3 MONTHS)
  5. RIFAMPIN [Concomitant]
     Active Substance: RIFAMPIN
     Indication: Granuloma annulare
     Dosage: 600 MILLIGRAM, MONTHLY (SINGLE ORAL DOSE ONCE A MONTH FOR 3 MONTHS)
  6. OFLOXACIN [Concomitant]
     Active Substance: OFLOXACIN
     Indication: Granuloma annulare
     Dosage: 400 MILLIGRAM, MONTHLY  (SINGLE ORAL DOSE ONCE A MONTH FOR 3 MONTHS)
  7. UPADACITINIB [Concomitant]
     Active Substance: UPADACITINIB
     Indication: Granuloma annulare
     Dosage: 15 MILLIGRAM, QD
     Route: 065

REACTIONS (2)
  - Drug ineffective for unapproved indication [Unknown]
  - Off label use [Unknown]
